FAERS Safety Report 8137597-4 (Version None)
Quarter: 2012Q1

REPORT INFORMATION
  Report Type: 
  Country: None (occurrence: None)
  Receive Date: 20120215
  Receipt Date: 20120207
  Transmission Date: 20120608
  Serious: No
  Sender: FDA-Public Use
  Company Number: US-PFIZER INC-2012038261

PATIENT

DRUGS (1)
  1. CELEBREX [Suspect]
     Dosage: 200MG, UNK
     Dates: start: 20120126

REACTIONS (1)
  - RASH [None]
